FAERS Safety Report 6735388-X (Version None)
Quarter: 2010Q2

REPORT INFORMATION
  Report Type: 
  Country: None (occurrence: None)
  Receive Date: 20100521
  Receipt Date: 20100517
  Transmission Date: 20101027
  Serious: Yes (Disabling, Other)
  Sender: FDA-Public Use
  Company Number: US-TEVA-234877USA

PATIENT
  Age: 37 Year
  Sex: Female

DRUGS (1)
  1. NORTREL 0.5/35-21 [Suspect]
     Route: 048
     Dates: start: 20090801, end: 20091101

REACTIONS (2)
  - HAND AMPUTATION [None]
  - THROMBOSIS [None]
